FAERS Safety Report 8780050 (Version 1)
Quarter: 2012Q4

REPORT INFORMATION
  Report Type: Spontaneous
  Country: US (occurrence: None)
  Receive Date: 20120831
  Receipt Date: 20120831
  Transmission Date: 20130627
  Serious: No
  Sender: FDA-Public Use
  Company Number: None

PATIENT
  Age: 14 Year
  Sex: Female
  Weight: 69.85 kg

DRUGS (1)
  1. LEXAPRO [Suspect]
     Dates: start: 201205

REACTIONS (2)
  - Fatigue [None]
  - Product substitution issue [None]
